FAERS Safety Report 5908283-3 (Version None)
Quarter: 2008Q4

REPORT INFORMATION
  Report Type: 
  Country: None (occurrence: None)
  Receive Date: 20081006
  Receipt Date: 20080924
  Transmission Date: 20090506
  Serious: Yes (Hospitalization)
  Sender: FDA-Public Use
  Company Number: US-WYE-H06001108

PATIENT
  Age: 61 Year
  Sex: Male

DRUGS (4)
  1. CORDARONE [Suspect]
     Indication: ATRIAL FIBRILLATION
     Dosage: 1000 MG LOADING DOSE
     Route: 042
  2. CORDARONE [Suspect]
     Route: 042
  3. AMIODARONE [Suspect]
     Indication: ATRIAL FIBRILLATION
     Route: 048
  4. AMIODARONE [Suspect]
     Route: 048

REACTIONS (4)
  - ACUTE RESPIRATORY FAILURE [None]
  - DRUG EFFECT DECREASED [None]
  - PLEURAL EFFUSION [None]
  - PULMONARY TOXICITY [None]
